FAERS Safety Report 23246865 (Version 1)
Quarter: 2023Q4

REPORT INFORMATION
  Report Type: Spontaneous
  Country: US (occurrence: US)
  Receive Date: 20231130
  Receipt Date: 20231130
  Transmission Date: 20240110
  Serious: Yes (Other)
  Sender: FDA-Public Use
  Company Number: US-ELI_LILLY_AND_COMPANY-US202311013637

PATIENT
  Sex: Female
  Weight: 137.6 kg

DRUGS (5)
  1. TADALAFIL [Suspect]
     Active Substance: TADALAFIL
     Indication: Pulmonary arterial hypertension
     Dosage: 20 MG, DAILY
     Route: 065
     Dates: start: 20221122
  2. TYVASO DPI [Suspect]
     Active Substance: TREPROSTINIL
     Indication: Pulmonary arterial hypertension
     Dosage: 64 UG, QID
     Route: 065
     Dates: start: 20220922
  3. DELTASONE [Suspect]
     Active Substance: PREDNISONE
     Indication: Sarcoidosis
     Dosage: 2.5 MG, QOD
     Route: 065
     Dates: start: 20230609, end: 20230622
  4. OPSUMIT [Suspect]
     Active Substance: MACITENTAN
     Indication: Pulmonary hypertension
     Dosage: 10 MG, DAILY
     Route: 065
     Dates: start: 20230312, end: 20230612
  5. DEMADEX [Suspect]
     Active Substance: TORSEMIDE
     Indication: Oedema
     Dosage: UNK UNK, OTHER (TAKE 20MG ALTERNATING WITH 40MG EVERY OTHER DAY FOR ONE MONTH)
     Route: 065
     Dates: start: 2023

REACTIONS (4)
  - Right ventricular failure [Not Recovered/Not Resolved]
  - Abdominal distension [Not Recovered/Not Resolved]
  - Fluid retention [Not Recovered/Not Resolved]
  - Dyspnoea exertional [Not Recovered/Not Resolved]
